FAERS Safety Report 8185428-9 (Version None)
Quarter: 2012Q1

REPORT INFORMATION
  Report Type: 
  Country: None (occurrence: None)
  Receive Date: 20120305
  Receipt Date: 20120229
  Transmission Date: 20120608
  Serious: Yes (Death, Other)
  Sender: FDA-Public Use
  Company Number: PHHY2012US017575

PATIENT
  Age: 7 Year
  Sex: Female

DRUGS (2)
  1. TACROLIMUS [Suspect]
     Indication: IMMUNOSUPPRESSION
     Dosage: UNK UKN, UNK
  2. PREDNISONE TAB [Suspect]
     Indication: IMMUNOSUPPRESSION
     Dosage: UNK UKN, UNK

REACTIONS (6)
  - SPLENIC LESION [None]
  - CARDIAC FAILURE [None]
  - HEPATIC LESION [None]
  - ACUTE MYELOID LEUKAEMIA [None]
  - LYMPHADENOPATHY [None]
  - HEPATOSPLENOMEGALY [None]
